FAERS Safety Report 23041658 (Version 5)
Quarter: 2024Q4

REPORT INFORMATION
  Report Type: Report from Study
  Country: CA (occurrence: CA)
  Receive Date: 20231007
  Receipt Date: 20241211
  Transmission Date: 20250115
  Serious: Yes (Hospitalization, Other)
  Sender: TAKEDA
  Company Number: CA-TAKEDA-2022TUS081732

PATIENT
  Age: 26 Year
  Sex: Female

DRUGS (7)
  1. VEDOLIZUMAB [Suspect]
     Active Substance: VEDOLIZUMAB
     Indication: Colitis ulcerative
     Dosage: 300 MILLIGRAM
  2. VEDOLIZUMAB [Suspect]
     Active Substance: VEDOLIZUMAB
     Dosage: 300 MILLIGRAM
  3. VEDOLIZUMAB [Suspect]
     Active Substance: VEDOLIZUMAB
     Dosage: 300 MILLIGRAM
  4. VEDOLIZUMAB [Suspect]
     Active Substance: VEDOLIZUMAB
     Dosage: 300 MILLIGRAM, Q4WEEKS
     Dates: start: 20231201
  5. VEDOLIZUMAB [Suspect]
     Active Substance: VEDOLIZUMAB
     Dosage: 300 MILLIGRAM, Q4WEEKS
  6. VEDOLIZUMAB [Suspect]
     Active Substance: VEDOLIZUMAB
     Dosage: 300 MILLIGRAM, Q4WEEKS
  7. Salofalk [Concomitant]
     Dosage: UNK

REACTIONS (4)
  - Colitis ulcerative [Unknown]
  - Pain [Unknown]
  - Constipation [Unknown]
  - Off label use [Unknown]

NARRATIVE: CASE EVENT DATE: 20231201
